FAERS Safety Report 9849340 (Version 1)
Quarter: 2014Q1

REPORT INFORMATION
  Report Type: Spontaneous
  Country: US (occurrence: None)
  Receive Date: 20140127
  Receipt Date: 20140127
  Transmission Date: 20141002
  Serious: Yes (Hospitalization)
  Sender: FDA-Public Use
  Company Number: None

PATIENT
  Age: 97 Year
  Sex: Male

DRUGS (2)
  1. PIPERACILLIN/TAZOBACTAM [Suspect]
     Indication: INFECTION
     Dates: start: 20131009, end: 20131016
  2. INDAPAMIDE [Suspect]
     Route: 048
     Dates: start: 20131009, end: 20131016

REACTIONS (1)
  - Tubulointerstitial nephritis [None]
